FAERS Safety Report 18425143 (Version 1)
Quarter: 2020Q4

REPORT INFORMATION
  Report Type: Spontaneous
  Country: US (occurrence: US)
  Receive Date: 20201026
  Receipt Date: 20201026
  Transmission Date: 20210114
  Serious: No
  Sender: FDA-Public Use
  Company Number: US-SA-2020SA300562

PATIENT

DRUGS (11)
  1. DUPIXENT [Suspect]
     Active Substance: DUPILUMAB
     Indication: DERMATITIS
     Dosage: 300 MG, QOW
     Route: 058
     Dates: start: 20191120
  2. VITAMIN D [COLECALCIFEROL] [Concomitant]
     Active Substance: CHOLECALCIFEROL
  3. REXULTI [Concomitant]
     Active Substance: BREXPIPRAZOLE
  4. DESVENLAFAXINA [DESVENLAFAXINE] [Concomitant]
  5. HYDROCODONE/ACETAMINOPHEN [Concomitant]
     Active Substance: ACETAMINOPHEN\HYDROCODONE
  6. ONDANSETRON [Concomitant]
     Active Substance: ONDANSETRON
  7. SULFAMETHOXAZOLE AND TRIMETHOPRIM [Concomitant]
     Active Substance: SULFAMETHOXAZOLE\TRIMETHOPRIM
  8. METHYLPHENIDAT [Concomitant]
     Active Substance: METHYLPHENIDATE
  9. KETOROLAC [Concomitant]
     Active Substance: KETOROLAC TROMETHAMINE
  10. TIZANIDINE. [Concomitant]
     Active Substance: TIZANIDINE
  11. DEXMETHYLPHEN HYDROCHLORIDE [Concomitant]

REACTIONS (1)
  - Eye pruritus [Not Recovered/Not Resolved]
